FAERS Safety Report 12728009 (Version 1)
Quarter: 2016Q3

REPORT INFORMATION
  Report Type: Spontaneous
  Country: PL (occurrence: PL)
  Receive Date: 20160909
  Receipt Date: 20160909
  Transmission Date: 20161109
  Serious: Yes (Hospitalization)
  Sender: FDA-Public Use
  Company Number: PHHY2016PL122400

PATIENT
  Age: 12 Year
  Sex: Male

DRUGS (1)
  1. AMOKSIKLAV [Suspect]
     Active Substance: AMOXICILLIN\CLAVULANATE POTASSIUM
     Indication: INFECTION
     Dosage: 475 MG, QD
     Route: 065
     Dates: start: 20160823, end: 20160830

REACTIONS (3)
  - Erythema [Recovering/Resolving]
  - Rash [Not Recovered/Not Resolved]
  - Oedema [Not Recovered/Not Resolved]

NARRATIVE: CASE EVENT DATE: 20160830
